FAERS Safety Report 25725353 (Version 1)
Quarter: 2025Q3

REPORT INFORMATION
  Report Type: Spontaneous
  Country: US (occurrence: US)
  Receive Date: 20250826
  Receipt Date: 20250826
  Transmission Date: 20251021
  Serious: No
  Sender: TARO
  Company Number: US-TARO PHARMACEUTICALS USA INC.-2024TAR01037

PATIENT

DRUGS (1)
  1. TERBINAFINE HYDROCHLORIDE [Suspect]
     Active Substance: TERBINAFINE HYDROCHLORIDE
     Indication: Fungal infection
     Dosage: UNK, OD, QUITE A BIT, LATHERED MY WHOLE SCALP
     Route: 061
     Dates: start: 202406

REACTIONS (1)
  - Drug ineffective [Unknown]
